FAERS Safety Report 5795503-1 (Version None)
Quarter: 2008Q2

REPORT INFORMATION
  Report Type: 
  Country: None (occurrence: None)
  Receive Date: 20080630
  Receipt Date: 20080617
  Transmission Date: 20081010
  Serious: Yes (Hospitalization)
  Sender: FDA-Public Use
  Company Number: PHHY2008SE11294

PATIENT
  Sex: Male

DRUGS (11)
  1. TASIGNA [Suspect]
     Indication: GASTROINTESTINAL STROMAL TUMOUR
     Dosage: 200 MG 2X2
     Dates: start: 20080301, end: 20080513
  2. ENALAPRIL MALEATE [Concomitant]
     Dosage: UNK
     Dates: end: 20080513
  3. SPIRONOLACTONE [Concomitant]
     Dosage: UNK
     Dates: end: 20080513
  4. AVANDIA [Concomitant]
     Dosage: UNK
     Dates: end: 20080513
  5. ISOPTIN - SLOW RELEASE [Concomitant]
  6. MOVICOL [Concomitant]
  7. BEVIPLEX [Concomitant]
  8. LAXOBERAL ^BOEHRINGER INGELHEIM^ [Concomitant]
  9. OXASCAND [Concomitant]
  10. IMOVANE [Concomitant]
  11. FUROSEMIDE [Concomitant]

REACTIONS (7)
  - ANAEMIA [None]
  - BLOOD CREATININE INCREASED [None]
  - BLOOD PHOSPHORUS INCREASED [None]
  - BLOOD URIC ACID INCREASED [None]
  - INFECTION [None]
  - OCCULT BLOOD [None]
  - RENAL FAILURE [None]
